FAERS Safety Report 19609144 (Version 3)
Quarter: 2021Q4

REPORT INFORMATION
  Report Type: Spontaneous
  Country: JP (occurrence: JP)
  Receive Date: 20210726
  Receipt Date: 20211119
  Transmission Date: 20220304
  Serious: Yes (Hospitalization, Other)
  Sender: FDA-Public Use
  Company Number: JP-MSD-M2021-17654

PATIENT
  Age: 60 Year
  Sex: Male

DRUGS (14)
  1. KEYTRUDA [Suspect]
     Active Substance: PEMBROLIZUMAB
     Indication: Non-small cell lung cancer stage IV
     Dosage: 200 MILLIGRAM, Q3W
     Route: 041
     Dates: start: 20200514, end: 20210620
  2. VOGLIBOSE [Concomitant]
     Active Substance: VOGLIBOSE
     Dosage: UNK UNK, TID
     Route: 048
     Dates: start: 20210629
  3. EMPAGLIFLOZIN\LINAGLIPTIN [Concomitant]
     Active Substance: EMPAGLIFLOZIN\LINAGLIPTIN
     Dosage: UNK UNK, QD
     Route: 048
     Dates: start: 20210629
  4. APIDRA [Concomitant]
     Active Substance: INSULIN GLULISINE
     Dosage: ?18-10-26?UNITS
     Route: 065
     Dates: start: 20210629
  5. APIDRA [Concomitant]
     Active Substance: INSULIN GLULISINE
     Dosage: ?22-14-30?UNITS
     Route: 065
     Dates: start: 20210720
  6. APIDRA [Concomitant]
     Active Substance: INSULIN GLULISINE
     Dosage: ?22-18-30?UNITS
     Route: 065
     Dates: start: 20210831
  7. APIDRA [Concomitant]
     Active Substance: INSULIN GLULISINE
     Dosage: ?22-25-30?UNITS
     Route: 065
     Dates: start: 20210928
  8. INSULIN NOS [Concomitant]
     Active Substance: INSULIN NOS
     Dosage: UNK
     Route: 065
  9. METGLUCO [Concomitant]
     Active Substance: METFORMIN HYDROCHLORIDE
     Dosage: UNK, BID
     Route: 048
     Dates: start: 20210629
  10. METGLUCO [Concomitant]
     Active Substance: METFORMIN HYDROCHLORIDE
     Dosage: UNK, TID
     Route: 048
     Dates: start: 20210729
  11. INSULIN GLARGINE [Concomitant]
     Active Substance: INSULIN GLARGINE
     Dosage: 28 UNITS
     Route: 065
     Dates: start: 20210629
  12. INSULIN GLARGINE [Concomitant]
     Active Substance: INSULIN GLARGINE
     Dosage: 33 UNITS
     Route: 065
     Dates: start: 20210720
  13. INSULIN GLARGINE [Concomitant]
     Active Substance: INSULIN GLARGINE
     Dosage: 40 UNITS
     Route: 065
     Dates: start: 20210831
  14. INSULIN GLARGINE [Concomitant]
     Active Substance: INSULIN GLARGINE
     Dosage: 47UNITS
     Route: 065
     Dates: start: 20210928

REACTIONS (1)
  - Type 2 diabetes mellitus [Unknown]

NARRATIVE: CASE EVENT DATE: 20210720
